FAERS Safety Report 6062724-2 (Version None)
Quarter: 2009Q1

REPORT INFORMATION
  Report Type: 
  Country: None (occurrence: None)
  Receive Date: 20090202
  Receipt Date: 20090202
  Transmission Date: 20090719
  Serious: Yes (Other)
  Sender: FDA-Public Use
  Company Number: None

PATIENT
  Age: 42 Year
  Sex: Female
  Weight: 90.7194 kg

DRUGS (1)
  1. TOPAMAX [Suspect]
     Indication: MIGRAINE
     Dosage: 50MG 2 X A DAY PO
     Route: 048
     Dates: start: 20050301, end: 20060309

REACTIONS (2)
  - DEPRESSION [None]
  - PSYCHOTIC DISORDER [None]
